FAERS Safety Report 7224816-1 (Version None)
Quarter: 2011Q1

REPORT INFORMATION
  Report Type: 
  Country: None (occurrence: None)
  Receive Date: 20110113
  Receipt Date: 20101231
  Transmission Date: 20110831
  Serious: Yes (Death)
  Sender: FDA-Public Use
  Company Number: US-CELGENEUS-163-21880-10121141

PATIENT
  Sex: Male

DRUGS (9)
  1. REVLIMID [Suspect]
     Route: 048
     Dates: start: 20100501
  2. REVLIMID [Suspect]
     Route: 048
     Dates: start: 20100701, end: 20101101
  3. LASIX [Concomitant]
     Route: 048
  4. SYNTHROID [Concomitant]
     Route: 065
  5. PREDNISONE [Concomitant]
     Route: 065
  6. IMODIUM [Concomitant]
     Route: 065
  7. CARDIZEM [Concomitant]
     Route: 065
  8. SPIRIVA [Concomitant]
     Route: 065
  9. ARANESP [Concomitant]
     Route: 065

REACTIONS (3)
  - RESPIRATORY FAILURE [None]
  - NEOPLASM PROGRESSION [None]
  - BACTERAEMIA [None]
